FAERS Safety Report 8088503-2 (Version None)
Quarter: 2012Q1

REPORT INFORMATION
  Report Type: 
  Country: None (occurrence: None)
  Receive Date: 20120128
  Receipt Date: 20110411
  Transmission Date: 20120608
  Serious: Yes (Hospitalization, Other)
  Sender: FDA-Public Use
  Company Number: US-ABBOTT-11P-163-0720012-00

PATIENT
  Sex: Female

DRUGS (5)
  1. IRON [Concomitant]
     Indication: MINERAL SUPPLEMENTATION
  2. EFFEXOR [Concomitant]
     Indication: PRODUCT USED FOR UNKNOWN INDICATION
  3. HUMIRA [Suspect]
     Indication: RHEUMATOID ARTHRITIS
     Dates: start: 20010101
  4. COMBIVENT [Concomitant]
     Indication: ASTHMA
  5. VITAMIN B-12 [Concomitant]
     Indication: VITAMIN SUPPLEMENTATION

REACTIONS (11)
  - DIZZINESS [None]
  - INCORRECT STORAGE OF DRUG [None]
  - PARAESTHESIA [None]
  - NAUSEA [None]
  - FOOT OPERATION [None]
  - ASTHMA [None]
  - VOMITING [None]
  - CHILLS [None]
  - HYPERHIDROSIS [None]
  - INJECTION SITE PAIN [None]
  - MALAISE [None]
